FAERS Safety Report 20193358 (Version 1)
Quarter: 2021Q4

REPORT INFORMATION
  Report Type: Report from Study
  Country: IL (occurrence: IL)
  Receive Date: 20211216
  Receipt Date: 20211216
  Transmission Date: 20220303
  Serious: Yes (Other)
  Sender: FDA-Public Use
  Company Number: IL-NOVARTISPH-NVSC2021IL077056

PATIENT
  Age: 79 Year
  Sex: Female

DRUGS (3)
  1. SANDOSTATIN LAR DEPOT [Suspect]
     Active Substance: OCTREOTIDE ACETATE
     Indication: Acromegaly
     Dosage: 60 MG, Q4W
     Route: 030
     Dates: start: 20141001
  2. SANDOSTATIN LAR DEPOT [Suspect]
     Active Substance: OCTREOTIDE ACETATE
  3. SANDOSTATIN LAR DEPOT [Suspect]
     Active Substance: OCTREOTIDE ACETATE

REACTIONS (7)
  - Cataract [Not Recovered/Not Resolved]
  - Rash [Not Recovered/Not Resolved]
  - Underdose [Unknown]
  - Needle issue [Unknown]
  - Syringe issue [Unknown]
  - Device leakage [Unknown]
  - Incorrect dose administered [Unknown]

NARRATIVE: CASE EVENT DATE: 20210331
